FAERS Safety Report 9728460 (Version 1)
Quarter: 2013Q4

REPORT INFORMATION
  Report Type: Spontaneous
  Country: US (occurrence: None)
  Receive Date: 20131203
  Receipt Date: 20131203
  Transmission Date: 20140711
  Serious: Yes (Life-Threatening, Hospitalization)
  Sender: FDA-Public Use
  Company Number: None

PATIENT
  Age: 45 Year
  Sex: Female
  Weight: 100 kg

DRUGS (1)
  1. COPAXONE [Suspect]
     Indication: MULTIPLE SCLEROSIS
     Route: 058
     Dates: start: 20131201

REACTIONS (7)
  - Cyanosis [None]
  - Respiratory arrest [None]
  - Hypotension [None]
  - Miosis [None]
  - Tachycardia [None]
  - Secretion discharge [None]
  - Coma scale abnormal [None]
